FAERS Safety Report 7359700-6 (Version None)
Quarter: 2011Q1

REPORT INFORMATION
  Report Type: 
  Country: None (occurrence: None)
  Receive Date: 20110317
  Receipt Date: 20100504
  Transmission Date: 20110831
  Serious: No
  Sender: FDA-Public Use
  Company Number: US-PFIZER INC-2010000721

PATIENT
  Sex: Female
  Weight: 76.644 kg

DRUGS (8)
  1. PREDNISOLONE [Concomitant]
     Dosage: UNK
     Route: 048
  2. OXAZEPAM [Concomitant]
     Indication: PALINDROMIC RHEUMATISM
     Dosage: FREQUENCY: 2-4 TIMES A WEEK,
     Dates: start: 20050101
  3. FEXOFENADINE [Concomitant]
     Indication: HYPERSENSITIVITY
     Dosage: 180 MG, AS NEEDED
     Dates: start: 20060101
  4. AMLODIPINE BESYLATE [Suspect]
     Indication: HYPERTENSION
     Dosage: 10 MG, 1X/DAY
     Route: 048
  5. ETANERCEPT [Concomitant]
     Indication: PALINDROMIC RHEUMATISM
     Dosage: FREQUENCY: 3 PILLS ONCE A WEEK,
     Dates: start: 20050101
  6. METHOTREXATE SODIUM [Concomitant]
     Indication: PALINDROMIC RHEUMATISM
     Dosage: FREQUENCY: 3 PILLS ONCE A WEEK,
     Dates: start: 20050101
  7. CALCIUM [Concomitant]
     Dosage: UNK
     Route: 048
  8. MULTI-VITAMINS [Concomitant]
     Dosage: UNK
     Route: 048

REACTIONS (2)
  - NAUSEA [None]
  - VOMITING [None]
